FAERS Safety Report 4694741-9 (Version None)
Quarter: 2005Q2

REPORT INFORMATION
  Report Type: 
  Country: None (occurrence: None)
  Receive Date: 20050617
  Receipt Date: 20050603
  Transmission Date: 20051028
  Serious: Yes (Hospitalization)
  Sender: FDA-Public Use
  Company Number: 2005BI001873

PATIENT
  Age: 81 Year
  Sex: Male
  Weight: 68.0396 kg

DRUGS (11)
  1. AVONEX [Suspect]
     Indication: MULTIPLE SCLEROSIS
     Dosage: 30 UG; QW; IM
     Route: 030
     Dates: start: 19990801, end: 20040801
  2. AVONEX [Suspect]
     Indication: MULTIPLE SCLEROSIS
     Dosage: 30 UG; QW; IM
     Route: 030
     Dates: start: 20040801
  3. PAIN MEDICATION (NOS) [Concomitant]
  4. ATENOLOL [Concomitant]
  5. CLOPIDOGREL BISULFATE [Concomitant]
  6. LEVOTHYROXINE [Concomitant]
  7. DIAZEPAM [Concomitant]
  8. VENLAFAXINE HCL [Concomitant]
  9. ASCORBIC ACID [Concomitant]
  10. OMEPRAZOLE [Concomitant]
  11. BACLOFEN [Concomitant]

REACTIONS (2)
  - AMNESIA [None]
  - BACK PAIN [None]
